FAERS Safety Report 13143355 (Version 1)
Quarter: 2017Q1

REPORT INFORMATION
  Report Type: Report from Study
  Country: US (occurrence: US)
  Receive Date: 20170124
  Receipt Date: 20170124
  Transmission Date: 20170428
  Serious: Yes (Hospitalization, Other)
  Sender: FDA-Public Use
  Company Number: US-PFIZER INC-2017026934

PATIENT
  Age: 66 Year
  Sex: Male

DRUGS (1)
  1. SUTENT [Suspect]
     Active Substance: SUNITINIB MALATE
     Indication: RENAL CELL CARCINOMA
     Dosage: 50 MG, CYCLIC (DAILY FOR DAY 1- DAY 28, FOLLOWED BY 14 DAYS OFF, TO COMPLETE 42 DAYS OF ONE CYCLE)
     Route: 048
     Dates: start: 20150227, end: 20160801

REACTIONS (5)
  - Constipation [Unknown]
  - Diarrhoea [Unknown]
  - Pericardial effusion [Unknown]
  - Thyroid disorder [Unknown]
  - Contusion [Unknown]
